FAERS Safety Report 21673942 (Version 2)
Quarter: 2022Q4

REPORT INFORMATION
  Report Type: Other
  Country: US (occurrence: US)
  Receive Date: 20221202
  Receipt Date: 20221222
  Transmission Date: 20230112
  Serious: Yes (Hospitalization, Other)
  Sender: FDA-Public Use
  Company Number: US-Covis Pharma GmbH-2022COV22510

PATIENT
  Sex: Male

DRUGS (1)
  1. MAKENA [Suspect]
     Active Substance: HYDROXYPROGESTERONE CAPROATE
     Indication: Foetal exposure during pregnancy
     Route: 064
     Dates: start: 20220916, end: 20221104

REACTIONS (4)
  - Foetal distress syndrome [Unknown]
  - Foetal growth restriction [Unknown]
  - Placental insufficiency [Unknown]
  - Premature baby [Unknown]

NARRATIVE: CASE EVENT DATE: 20220101
